FAERS Safety Report 9226210 (Version 1)
Quarter: 2013Q2

REPORT INFORMATION
  Report Type: Spontaneous
  Country: US (occurrence: US)
  Receive Date: 20130411
  Receipt Date: 20130411
  Transmission Date: 20140414
  Serious: Yes (Other)
  Sender: FDA-Public Use
  Company Number: PHHY2013US032694

PATIENT
  Age: 13 Year
  Sex: Female
  Weight: 61 kg

DRUGS (3)
  1. AMLODIPINE [Suspect]
     Dosage: 30 DF, UNK
     Route: 048
  2. BARBITURATES AND DERIVATIVES [Suspect]
  3. ALCOHOL [Concomitant]
     Dosage: 6 DF, UNK

REACTIONS (16)
  - Metabolic acidosis [Recovering/Resolving]
  - Lactic acidosis [Recovering/Resolving]
  - Hypoperfusion [Recovering/Resolving]
  - Oliguria [Recovering/Resolving]
  - Blood creatinine increased [Recovering/Resolving]
  - Mental status changes [Recovered/Resolved]
  - Hypotension [Recovering/Resolving]
  - Fatigue [Recovering/Resolving]
  - Heart rate increased [Recovering/Resolving]
  - Somnolence [Recovering/Resolving]
  - Nausea [Recovering/Resolving]
  - Vomiting [Recovering/Resolving]
  - Intentional overdose [Recovering/Resolving]
  - Intentional overdose [None]
  - Blood glucose increased [None]
  - Extracorporeal circulation [None]
